FAERS Safety Report 18590783 (Version 2)
Quarter: 2021Q1

REPORT INFORMATION
  Report Type: Spontaneous
  Country: US (occurrence: US)
  Receive Date: 20201208
  Receipt Date: 20210125
  Transmission Date: 20210419
  Serious: No
  Sender: FDA-Public Use
  Company Number: US-ASTRAZENECA-2020SF57137

PATIENT
  Age: 28959 Day
  Sex: Female
  Weight: 69.9 kg

DRUGS (2)
  1. NITROFURANTOIN  MONO? [Concomitant]
     Indication: URINARY TRACT INFECTION
     Dosage: 1000.0MG UNKNOWN
     Route: 048
  2. SYMBICORT [Suspect]
     Active Substance: BUDESONIDE\FORMOTEROL FUMARATE DIHYDRATE
     Indication: CHRONIC OBSTRUCTIVE PULMONARY DISEASE
     Dosage: 160/4.5 MCG, TWO PUFF IN THE MORNING AND TWO PUFFS IN THE EVENING160UG/INHAL TWO TIMES A DAY
     Route: 055
     Dates: start: 2019

REACTIONS (4)
  - Incorrect dose administered [Unknown]
  - Intentional device use issue [Unknown]
  - Dyspnoea [Unknown]
  - Device delivery system issue [Unknown]

NARRATIVE: CASE EVENT DATE: 20201102
